FAERS Safety Report 13650682 (Version 1)
Quarter: 2017Q2

REPORT INFORMATION
  Report Type: Spontaneous
  Country: BG (occurrence: BG)
  Receive Date: 20170614
  Receipt Date: 20170614
  Transmission Date: 20170830
  Serious: Yes (Hospitalization)
  Sender: FDA-Public Use
  Company Number: BG-ROCHE-1948893

PATIENT
  Age: 57 Year
  Sex: Female

DRUGS (2)
  1. ACTILYSE [Suspect]
     Active Substance: ALTEPLASE
     Indication: DYSARTHRIA
  2. ACTILYSE [Suspect]
     Active Substance: ALTEPLASE
     Indication: HEMIPLEGIA
     Route: 065

REACTIONS (2)
  - Carotid artery occlusion [Recovered/Resolved]
  - Carotid artery thrombosis [Recovered/Resolved]
